FAERS Safety Report 23098208 (Version 1)
Quarter: 2023Q4

REPORT INFORMATION
  Report Type: Spontaneous
  Country: US (occurrence: None)
  Receive Date: 20231018
  Receipt Date: 20231018
  Transmission Date: 20240110
  Serious: Yes (Life-Threatening, Hospitalization)
  Sender: FDA-Public Use
  Company Number: None

PATIENT
  Age: 42 Year
  Sex: Male
  Weight: 92.25 kg

DRUGS (2)
  1. TIANEPTINE [Suspect]
     Active Substance: TIANEPTINE
     Indication: Product used for unknown indication
     Dosage: OTHER QUANTITY : 1 BOTTLE;?FREQUENCY : DAILY;?
     Route: 048
     Dates: start: 20230924, end: 20230924
  2. TIANEPTINE [Suspect]
     Active Substance: TIANEPTINE

REACTIONS (6)
  - Seizure [None]
  - Cardiac arrest [None]
  - Pneumonia [None]
  - Respiratory rate decreased [None]
  - Loss of consciousness [None]
  - Product formulation issue [None]

NARRATIVE: CASE EVENT DATE: 20230924
